FAERS Safety Report 13667036 (Version 1)
Quarter: 2017Q2

REPORT INFORMATION
  Report Type: Spontaneous
  Country: US (occurrence: US)
  Receive Date: 20170619
  Receipt Date: 20170619
  Transmission Date: 20170830
  Serious: No
  Sender: FDA-Public Use
  Company Number: US-ROCHE-1301124

PATIENT
  Sex: Female

DRUGS (2)
  1. XELODA [Suspect]
     Active Substance: CAPECITABINE
     Indication: BREAST CANCER
  2. XELODA [Suspect]
     Active Substance: CAPECITABINE
     Indication: TONSIL CANCER
     Dosage: 3 IN THE AM 2 IN THE PM, 7 DAYS ON , 7 DAYS OFF
     Route: 048
     Dates: start: 20130911

REACTIONS (3)
  - Haemorrhage [Not Recovered/Not Resolved]
  - Skin fissures [Not Recovered/Not Resolved]
  - Skin discolouration [Not Recovered/Not Resolved]
